FAERS Safety Report 21243719 (Version 2)
Quarter: 2022Q3

REPORT INFORMATION
  Report Type: Spontaneous
  Country: UG (occurrence: UG)
  Receive Date: 20220823
  Receipt Date: 20220823
  Transmission Date: 20221027
  Serious: No
  Sender: FDA-Public Use
  Company Number: UG-PFIZER INC-PV202200040877

PATIENT
  Age: 24 Year
  Sex: Female

DRUGS (3)
  1. MISOPROSTOL [Suspect]
     Active Substance: MISOPROSTOL
     Indication: Abortion missed
     Dosage: UNK
  2. DEXTROSE [Concomitant]
     Active Substance: DEXTROSE
     Dosage: UNK
  3. LACTULOSE [Concomitant]
     Active Substance: LACTULOSE
     Dosage: UNK

REACTIONS (2)
  - Off label use [Unknown]
  - Drug effective for unapproved indication [Unknown]
